FAERS Safety Report 17556034 (Version 8)
Quarter: 2021Q3

REPORT INFORMATION
  Report Type: Spontaneous
  Country: IN (occurrence: IN)
  Receive Date: 20200318
  Receipt Date: 20210929
  Transmission Date: 20211014
  Serious: Yes (Hospitalization, Other)
  Sender: FDA-Public Use
  Company Number: IN-PFIZER INC-2020115162

PATIENT
  Age: 58 Year
  Sex: Female
  Weight: 53 kg

DRUGS (7)
  1. SHELCAL [Concomitant]
     Active Substance: CALCIUM CARBONATE\CHOLECALCIFEROL
     Dosage: 500 MG, 2X/DAY
  2. DUPHALAC EASY [Concomitant]
     Active Substance: LACTULOSE
     Indication: CONSTIPATION
     Dosage: 15 ML, AT BED TIME (IF CONSTIPATION)
  3. CRIZALK [Suspect]
     Active Substance: CRIZOTINIB
     Indication: LUNG NEOPLASM MALIGNANT
     Dosage: 250 MG, 2X/DAY (1 HOUR BEFORE MEAL)
     Route: 048
     Dates: start: 20190719, end: 202106
  4. ZOFER [Concomitant]
     Active Substance: ONDANSETRON HYDROCHLORIDE
     Dosage: 8 MG, TAKEN 30 MINS BEFORE CRIZOTINIB
  5. PARACETAMOL [Concomitant]
     Active Substance: ACETAMINOPHEN
     Indication: PYREXIA
  6. MEGASTY [Concomitant]
     Dosage: 160 MG, 2X/DAY
  7. PARACETAMOL [Concomitant]
     Active Substance: ACETAMINOPHEN
     Indication: PAIN
     Dosage: 1 G, 1 TAB SOS (MAX 3 DOSES)

REACTIONS (13)
  - Hypotension [Recovered/Resolved]
  - Pericardial effusion [Unknown]
  - Electrocardiogram QT prolonged [Unknown]
  - Nasopharyngitis [Unknown]
  - Cough [Unknown]
  - Malaise [Unknown]
  - Sepsis [Recovered/Resolved]
  - Toothache [Unknown]
  - Pyrexia [Recovered/Resolved]
  - Escherichia urinary tract infection [Recovering/Resolving]
  - Vomiting [Unknown]
  - Gait inability [Unknown]
  - Neoplasm progression [Unknown]

NARRATIVE: CASE EVENT DATE: 20190808
